FAERS Safety Report 8102742-3 (Version None)
Quarter: 2012Q1

REPORT INFORMATION
  Report Type: 
  Country: None (occurrence: None)
  Receive Date: 20120201
  Receipt Date: 20120125
  Transmission Date: 20120608
  Serious: Yes (Other)
  Sender: FDA-Public Use
  Company Number: US-PFIZER INC-2012021183

PATIENT
  Sex: Male
  Weight: 27.211 kg

DRUGS (7)
  1. BENEFIX [Suspect]
     Indication: FACTOR IX DEFICIENCY
     Dosage: 2100 UNITS, WEEKLY
     Route: 058
     Dates: start: 20051223
  2. DEPAKOTE [Concomitant]
     Dosage: 250MG IN THE MORNING AND 500MG AT NIGHT
  3. ZOLOFT [Concomitant]
     Dosage: 75 MG, 1X/DAY
  4. ABILIFY [Concomitant]
     Dosage: 5 MG, 2X/DAY
  5. RITALIN [Concomitant]
     Dosage: 20 MG, 3X/DAY
  6. INTUNIV [Concomitant]
     Dosage: 2 MG, 2X/DAY
  7. MELATONIN [Concomitant]
     Dosage: 3 MG, 1X/DAY

REACTIONS (3)
  - FALL [None]
  - HAEMORRHAGE [None]
  - JOINT INJURY [None]
